FAERS Safety Report 9461085 (Version 1)
Quarter: 2013Q3

REPORT INFORMATION
  Report Type: Spontaneous
  Country: GB (occurrence: GB)
  Receive Date: 20130816
  Receipt Date: 20130816
  Transmission Date: 20140515
  Serious: Yes (Other)
  Sender: FDA-Public Use
  Company Number: GB-009507513-1308GBR005991

PATIENT
  Sex: Female

DRUGS (1)
  1. ETONOGESTREL IMPLANT- UNKNOWN [Suspect]
     Dosage: UNK
     Dates: start: 2007

REACTIONS (3)
  - Post viral fatigue syndrome [Unknown]
  - Chronic fatigue syndrome [Unknown]
  - Incorrect drug administration duration [Unknown]
